FAERS Safety Report 18200523 (Version 1)
Quarter: 2020Q3

REPORT INFORMATION
  Report Type: Spontaneous
  Country: US (occurrence: US)
  Receive Date: 20200827
  Receipt Date: 20200827
  Transmission Date: 20201103
  Serious: Yes (Hospitalization, Other)
  Sender: FDA-Public Use
  Company Number: US-OCTA-NGAM04820US

PATIENT
  Age: 39 Year
  Sex: Female

DRUGS (1)
  1. PANZYGA [Suspect]
     Active Substance: HUMAN IMMUNOGLOBULIN G
     Indication: PRODUCT USED FOR UNKNOWN INDICATION
     Route: 042
     Dates: start: 20200814, end: 20200814

REACTIONS (1)
  - Aura [Unknown]

NARRATIVE: CASE EVENT DATE: 20200814
